FAERS Safety Report 9216385 (Version 1)
Quarter: 2013Q2

REPORT INFORMATION
  Report Type: Spontaneous
  Country: GB (occurrence: None)
  Receive Date: 20130403
  Receipt Date: 20130403
  Transmission Date: 20140414
  Serious: Yes (Other)
  Sender: FDA-Public Use
  Company Number: 2013097252

PATIENT
  Age: 60 Year
  Sex: Female

DRUGS (6)
  1. DALTEPARIN SODIUM [Suspect]
     Indication: PULMONARY EMBOLISM
     Dosage: 12500 UNITS, SUBCUTANEOUS
     Route: 058
     Dates: start: 20130302, end: 20130305
  2. CLOPIDOGREL (CLOPIDOGREL) [Concomitant]
  3. LOSARTAN (LOSARTAN) [Concomitant]
  4. SIMVASTATIN (SIMVASTATIN) [Concomitant]
  5. ESOMEPRAZOLE (ESOMEPRAZOLE) [Concomitant]
  6. CITALOPRAM (CITALOPRAM) [Concomitant]

REACTIONS (6)
  - Skin necrosis [None]
  - Pain of skin [None]
  - Erythema [None]
  - Skin warm [None]
  - Blister [None]
  - Platelet count decreased [None]
